FAERS Safety Report 6587637-9 (Version None)
Quarter: 2010Q1

REPORT INFORMATION
  Report Type: 
  Country: None (occurrence: None)
  Receive Date: 20100218
  Receipt Date: 20100211
  Transmission Date: 20100710
  Serious: Yes (Death, Life-Threatening, Other)
  Sender: FDA-Public Use
  Company Number: DE-WYE-G04145209

PATIENT
  Sex: Female
  Weight: 78 kg

DRUGS (14)
  1. TREVILOR [Interacting]
     Dosage: DRUG ABUSE OF UNKNOWN DOSAGE
     Route: 048
     Dates: start: 20090101, end: 20090318
  2. DORMICUM [Suspect]
     Route: 042
     Dates: start: 20090318, end: 20090318
  3. JATROSOM N [Interacting]
     Indication: DEPRESSION
     Route: 048
     Dates: start: 20090217, end: 20090302
  4. JATROSOM N [Interacting]
     Route: 048
     Dates: start: 20090303, end: 20090318
  5. MELPERONE [Concomitant]
     Route: 048
     Dates: start: 20081203, end: 20081223
  6. MELPERONE [Concomitant]
     Route: 048
     Dates: start: 20081224, end: 20090318
  7. L-THYROXIN [Interacting]
     Route: 048
     Dates: start: 20081220, end: 20090108
  8. L-THYROXIN [Interacting]
     Route: 048
     Dates: start: 20090109, end: 20090130
  9. L-THYROXIN [Interacting]
     Route: 048
     Dates: start: 20090131, end: 20090313
  10. L-THYROXIN [Interacting]
     Route: 048
     Dates: start: 20090314, end: 20090318
  11. SIMVASTATIN [Concomitant]
     Route: 048
     Dates: start: 20090313, end: 20090318
  12. TAVOR [Suspect]
     Indication: DEPRESSION
     Dosage: DAILY DOSE BETWEEN 0.5 AND 1.5 MG
     Route: 048
     Dates: start: 20090205, end: 20090317
  13. TAVOR [Suspect]
     Route: 048
     Dates: start: 20090318, end: 20090318
  14. DIAZEPAM [Suspect]
     Route: 042
     Dates: start: 20090318, end: 20090318

REACTIONS (10)
  - ANAPHYLACTIC REACTION [None]
  - BUNDLE BRANCH BLOCK LEFT [None]
  - CIRCULATORY COLLAPSE [None]
  - DEPRESSED LEVEL OF CONSCIOUSNESS [None]
  - DRUG ABUSE [None]
  - DRUG INTERACTION [None]
  - ELECTROCARDIOGRAM ST SEGMENT ELEVATION [None]
  - RESPIRATORY DEPRESSION [None]
  - SEROTONIN SYNDROME [None]
  - STATUS EPILEPTICUS [None]
